FAERS Safety Report 20808879 (Version 1)
Quarter: 2022Q2

REPORT INFORMATION
  Report Type: Spontaneous
  Country: US (occurrence: None)
  Receive Date: 20220509
  Receipt Date: 20220509
  Transmission Date: 20220721
  Serious: Yes (Disabling)
  Sender: FDA-Public Use
  Company Number: None

PATIENT
  Age: 30 Year
  Sex: Male
  Weight: 83.25 kg

DRUGS (1)
  1. METHYLPREDNISOLONE ACETATE [Suspect]
     Active Substance: METHYLPREDNISOLONE ACETATE
     Indication: Plantar fasciitis
     Dates: start: 20210628, end: 20210628

REACTIONS (10)
  - Product quality issue [None]
  - Product temperature excursion issue [None]
  - Plantar fasciitis [None]
  - Condition aggravated [None]
  - Impaired healing [None]
  - Impaired work ability [None]
  - Inflammation [None]
  - Exercise tolerance decreased [None]
  - Gait disturbance [None]
  - Dysstasia [None]

NARRATIVE: CASE EVENT DATE: 20210628
